FAERS Safety Report 10485914 (Version 2)
Quarter: 2014Q4

REPORT INFORMATION
  Report Type: Spontaneous
  Country: NL (occurrence: NL)
  Receive Date: 20141001
  Receipt Date: 20141013
  Transmission Date: 20150528
  Serious: Yes (Death, Hospitalization)
  Sender: FDA-Public Use
  Company Number: NL-AUROBINDO-AUR-APL-2014-10401

PATIENT
  Age: 77 Year
  Sex: Male

DRUGS (8)
  1. CEFTRIAXONE AUROBINDO, POWDER FOR SOLUTION FOR INJECTION 2G [Suspect]
     Active Substance: CEFTRIAXONE
     Indication: HEADACHE
     Dosage: 2 G, TWO TIMES A DAY
     Route: 042
  2. CLARITHROMYCIN 250MG [Suspect]
     Active Substance: CLARITHROMYCIN
     Indication: CONFUSIONAL STATE
  3. METRONIDAZOLE. [Suspect]
     Active Substance: METRONIDAZOLE
     Indication: BACTERIAL INFECTION
     Dosage: 500 MG, 3 TIMES A DAY
     Route: 042
  4. VANCOMYCIN HCL [Suspect]
     Active Substance: VANCOMYCIN HYDROCHLORIDE
     Indication: PRODUCT USED FOR UNKNOWN INDICATION
     Dosage: UNK
     Route: 042
  5. PENICILLIN                         /00000901/ [Suspect]
     Active Substance: PENICILLIN
     Indication: PRODUCT USED FOR UNKNOWN INDICATION
     Dosage: 12 MILLION IU, DAILY
     Route: 042
  6. AMOXICILLIN. [Suspect]
     Active Substance: AMOXICILLIN
     Indication: PRODUCT USED FOR UNKNOWN INDICATION
     Dosage: 2 G, SIX TIMES DAILY
     Route: 042
  7. CEFTRIAXONE AUROBINDO, POWDER FOR SOLUTION FOR INJECTION 2G [Suspect]
     Active Substance: CEFTRIAXONE
     Indication: CONFUSIONAL STATE
     Dosage: UNK
     Route: 065
  8. CLARITHROMYCIN 250MG [Suspect]
     Active Substance: CLARITHROMYCIN
     Indication: HEADACHE
     Dosage: 250 MG, TWO TIMES A DAY
     Route: 048

REACTIONS (2)
  - Acute kidney injury [Fatal]
  - Drug reaction with eosinophilia and systemic symptoms [Fatal]
